FAERS Safety Report 6057446-8 (Version None)
Quarter: 2009Q1

REPORT INFORMATION
  Report Type: 
  Country: None (occurrence: None)
  Receive Date: 20090126
  Receipt Date: 20090126
  Transmission Date: 20090719
  Serious: Yes (Hospitalization, Disabling, Other)
  Sender: FDA-Public Use
  Company Number: None

PATIENT
  Age: 42 Year
  Sex: Female
  Weight: 52.6173 kg

DRUGS (2)
  1. METHYLPREDNISOLONE 4MG TAB [Suspect]
     Indication: CERVICOBRACHIAL SYNDROME
     Dosage: DOSPAK TAPER
     Dates: start: 20080331, end: 20080405
  2. PREDNISONE 10MG 10MG TABLETS [Suspect]
     Indication: BRACHIAL PLEXOPATHY
     Dosage: EST THRU MAY 03/08
     Dates: start: 20080425, end: 20080530

REACTIONS (2)
  - ALOPECIA [None]
  - OSTEONECROSIS [None]
